FAERS Safety Report 4736529-6 (Version None)
Quarter: 2005Q3

REPORT INFORMATION
  Report Type: 
  Country: None (occurrence: None)
  Receive Date: 20050802
  Receipt Date: 20050721
  Transmission Date: 20060218
  Serious: Yes (Other)
  Sender: FDA-Public Use
  Company Number: 2005107208

PATIENT
  Age: 52 Year
  Sex: Male

DRUGS (2)
  1. DOSTINEX [Suspect]
     Indication: PITUITARY TUMOUR
     Dosage: SEE IMAGE, ORAL
     Route: 048
     Dates: start: 20040801
  2. DOSTINEX [Suspect]
     Indication: PITUITARY TUMOUR
     Dosage: SEE IMAGE, ORAL
     Route: 048
     Dates: start: 20041201

REACTIONS (1)
  - PRIAPISM [None]
